FAERS Safety Report 5146154-3 (Version None)
Quarter: 2006Q4

REPORT INFORMATION
  Report Type: 
  Country: None (occurrence: None)
  Receive Date: 20061108
  Receipt Date: 20060310
  Transmission Date: 20070319
  Serious: Yes (Death, Hospitalization)
  Sender: FDA-Public Use
  Company Number: US-SANOFI-SYNTHELABO-A03200601312

PATIENT
  Sex: Male
  Weight: 39.91 kg

DRUGS (19)
  1. METOCLOPRAMIDE [Concomitant]
     Dosage: UNK
     Route: 065
  2. PRILOSEC [Concomitant]
     Dosage: UNK
     Route: 065
  3. LORAZEPAM [Concomitant]
     Dosage: UNK
     Route: 065
  4. PANCREASE [Concomitant]
     Dosage: UNK
     Route: 065
  5. POTASSIUM ACETATE [Concomitant]
     Dosage: UNK
     Route: 065
  6. ISOSORBIDE [Concomitant]
     Dosage: UNK
     Route: 065
  7. DIGOXIN [Concomitant]
     Dosage: UNK
     Route: 065
  8. FUROSEMIDE [Concomitant]
     Dosage: UNK
     Route: 065
  9. ZOCOR [Concomitant]
     Dosage: UNK
     Route: 065
  10. ALTACE [Concomitant]
     Dosage: UNK
     Route: 065
  11. COREG [Concomitant]
     Dosage: UNK
     Route: 065
  12. PLAVIX [Suspect]
     Indication: HYPERTENSION
     Route: 048
  13. OXYGEN [Concomitant]
     Dosage: UNK
     Route: 045
  14. XOPENEX [Concomitant]
     Dosage: UNK
     Route: 048
  15. BUDESONIDE [Concomitant]
     Dosage: UNK
     Route: 065
  16. SPIRIVA [Concomitant]
     Dosage: UNK
     Route: 065
  17. SONATA [Concomitant]
     Dosage: UNK
     Route: 048
  18. PROMETHAZINE [Concomitant]
     Dosage: UNK
     Route: 065
  19. LOPERAMIDE [Concomitant]
     Dosage: UNK
     Route: 065

REACTIONS (2)
  - CHRONIC OBSTRUCTIVE PULMONARY DISEASE [None]
  - CONDITION AGGRAVATED [None]
